FAERS Safety Report 5221766-7 (Version None)
Quarter: 2007Q1

REPORT INFORMATION
  Report Type: 
  Country: None (occurrence: None)
  Receive Date: 20070129
  Receipt Date: 20070118
  Transmission Date: 20070707
  Serious: Yes (Other)
  Sender: FDA-Public Use
  Company Number: CA-AVENTIS-200622970GDDC

PATIENT
  Age: 74 Year
  Sex: Male

DRUGS (3)
  1. FLAGYL [Suspect]
     Indication: PNEUMONIA
     Dosage: DOSE: 2 CAPSULES DAILY
     Route: 048
     Dates: start: 20060601
  2. CARDIOVASCULAR SYSTEM DRUGS [Concomitant]
  3. CHOLESTEROL- AND TRIGLYCERIDE REDUCERS [Concomitant]

REACTIONS (1)
  - CLOSTRIDIUM DIFFICILE COLITIS [None]
